FAERS Safety Report 15187326 (Version 1)
Quarter: 2018Q3

REPORT INFORMATION
  Report Type: Report from Study
  Country: US (occurrence: US)
  Receive Date: 20180723
  Receipt Date: 20180723
  Transmission Date: 20181010
  Serious: No
  Sender: FDA-Public Use
  Company Number: US-EXELIXIS-CABO-17011874

PATIENT
  Age: 82 Year
  Sex: Female

DRUGS (9)
  1. PANTOPRAZOLE [Concomitant]
     Active Substance: PANTOPRAZOLE
  2. SERTRALINE [Concomitant]
     Active Substance: SERTRALINE HYDROCHLORIDE
  3. AMPICILLIN [Concomitant]
     Active Substance: AMPICILLIN
  4. ANASTROZOLE. [Concomitant]
     Active Substance: ANASTROZOLE
  5. NITROFUR [Concomitant]
     Active Substance: NITROFURANTOIN
  6. CIPRO [Concomitant]
     Active Substance: CIPROFLOXACIN HYDROCHLORIDE
  7. CABOMETYX [Suspect]
     Active Substance: CABOZANTINIB S-MALATE
     Indication: ANAEMIA
     Dosage: 40 MG, QD
     Route: 048
     Dates: start: 20171225
  8. AMLODIPINE [Concomitant]
     Active Substance: AMLODIPINE BESYLATE
  9. CARVEDILOL. [Concomitant]
     Active Substance: CARVEDILOL

REACTIONS (4)
  - Musculoskeletal pain [Unknown]
  - Flatulence [Not Recovered/Not Resolved]
  - Off label use [Unknown]
  - Diarrhoea [Not Recovered/Not Resolved]

NARRATIVE: CASE EVENT DATE: 20171225
